FAERS Safety Report 8764023 (Version 1)
Quarter: 2012Q4

REPORT INFORMATION
  Report Type: 
  Country: GB (occurrence: GB)
  Receive Date: 20120831
  Receipt Date: 20120831
  Transmission Date: 20130627
  Serious: Yes (Hospitalization)
  Sender: FDA-Public Use
  Company Number: GB-RANBAXY-2012R1-59322

PATIENT
  Age: 1 Hour
  Sex: Male
  Weight: 2.2 kg

DRUGS (9)
  1. CITALOPRAM [Suspect]
     Indication: DEPRESSION
     Dosage: 20 mg, qd
     Route: 064
     Dates: start: 20111004
  2. DIHYDROCODEINE [Suspect]
     Indication: PAIN
     Dosage: 60 mg, qd
     Route: 064
     Dates: start: 20100315
  3. FLUOXETINE [Suspect]
     Indication: DEPRESSION
     Dosage: 60 mg, qd
     Route: 064
     Dates: start: 20100621, end: 20111004
  4. OMEPRAZOLE [Suspect]
     Indication: DYSPEPSIA
     Dosage: 20 mg, qd
     Route: 064
     Dates: start: 20080919
  5. PROPRANOLOL [Suspect]
     Indication: ANXIETY
     Dosage: 10 mg, bid
     Route: 064
     Dates: start: 20090505
  6. PROPRANOLOL [Suspect]
     Indication: PALPITATIONS
  7. CHLORPROMAZINE [Suspect]
     Indication: ANXIETY
     Dosage: 25 mg, qd
     Route: 064
     Dates: start: 20110922
  8. SEROQUEL XL [Suspect]
     Indication: ANXIETY
     Dosage: 200 mg, bid
     Route: 064
     Dates: start: 20110323, end: 20110910
  9. SEROQUEL XL [Suspect]
     Indication: DEPRESSION

REACTIONS (5)
  - Drug withdrawal syndrome neonatal [Unknown]
  - Hypocalcaemia [Unknown]
  - Pneumothorax [Unknown]
  - Premature baby [Unknown]
  - Neonatal respiratory distress syndrome [Unknown]
